FAERS Safety Report 7901450-9 (Version None)
Quarter: 2011Q4

REPORT INFORMATION
  Report Type: 
  Country: None (occurrence: None)
  Receive Date: 20111108
  Receipt Date: 20111102
  Transmission Date: 20120403
  Serious: Yes (Other)
  Sender: FDA-Public Use
  Company Number: JP-JNJFOC-20111008815

PATIENT
  Age: 8 Decade
  Sex: Female

DRUGS (1)
  1. TRAMADOL HYDROCHLORIDE/ACETAMINOPHEN [Suspect]
     Indication: BACK PAIN
     Route: 048
     Dates: start: 20110811, end: 20111017

REACTIONS (3)
  - DELUSION [None]
  - TREATMENT NONCOMPLIANCE [None]
  - MENTAL DISORDER [None]
